FAERS Safety Report 4439984-4 (Version None)
Quarter: 2004Q3

REPORT INFORMATION
  Report Type: 
  Country: None (occurrence: None)
  Receive Date: 20040831
  Receipt Date: 20040525
  Transmission Date: 20050211
  Serious: No
  Sender: FDA-Public Use
  Company Number: 701691

PATIENT
  Age: 56 Year
  Sex: Male
  Weight: 136.0791 kg

DRUGS (1)
  1. AMEVIVE [Suspect]
     Indication: PSORIASIS
     Dosage: 15 MG QW IM
     Route: 030
     Dates: start: 20030711, end: 20031219

REACTIONS (2)
  - ARTHRITIS [None]
  - CD4 LYMPHOCYTES DECREASED [None]
